FAERS Safety Report 5971791-3 (Version None)
Quarter: 2008Q4

REPORT INFORMATION
  Report Type: 
  Country: None (occurrence: None)
  Receive Date: 20081125
  Receipt Date: 20081112
  Transmission Date: 20090506
  Serious: Yes (Hospitalization)
  Sender: FDA-Public Use
  Company Number: 231760K08USA

PATIENT
  Age: 37 Year
  Sex: Female

DRUGS (8)
  1. REBIF [Suspect]
     Indication: MULTIPLE SCLEROSIS
     Dosage: 44 MCG, 3 IN 1 WEEKS, SUBCUTANEOUS
     Route: 058
     Dates: start: 20080311
  2. TEGRETOL [Concomitant]
  3. OMEPRAZOLE [Concomitant]
  4. OXYBUTYNIN CHLORIDE [Concomitant]
  5. ALBUTEROL [Concomitant]
  6. TRAZODONE HCL [Concomitant]
  7. AMANTADINE HCL [Concomitant]
  8. DURAGESIC-100 [Concomitant]

REACTIONS (5)
  - BACK PAIN [None]
  - HEADACHE [None]
  - INTRACRANIAL HYPOTENSION [None]
  - MULTIPLE SCLEROSIS RELAPSE [None]
  - POST PROCEDURAL COMPLICATION [None]
